FAERS Safety Report 15862891 (Version 2)
Quarter: 2019Q1

REPORT INFORMATION
  Report Type: Spontaneous
  Country: NZ (occurrence: NZ)
  Receive Date: 20190124
  Receipt Date: 20190226
  Transmission Date: 20190417
  Serious: Yes (Hospitalization)
  Sender: FDA-Public Use
  Company Number: NZ-AMREGENT-20190087

PATIENT
  Age: 25 Year
  Sex: Female

DRUGS (2)
  1. FERINJECT [Suspect]
     Active Substance: FERRIC CARBOXYMALTOSE
     Dosage: 20ML IN 250ML OF NSS (1000MG)
     Route: 041
     Dates: start: 20181212, end: 20181212
  2. IODINE. [Concomitant]
     Active Substance: IODINE
     Dosage: 150 MCG
     Route: 048

REACTIONS (10)
  - Maternal distress during labour [Recovered/Resolved]
  - Headache [Recovered/Resolved]
  - Abdominal pain [Recovered/Resolved]
  - Hypersensitivity [Recovered/Resolved]
  - Suspected product quality issue [Unknown]
  - Postpartum haemorrhage [Unknown]
  - Hypertension [Recovered/Resolved]
  - Tachycardia [Recovered/Resolved]
  - Maternal exposure during pregnancy [Unknown]
  - Premature baby [Unknown]

NARRATIVE: CASE EVENT DATE: 201812
